FAERS Safety Report 11883369 (Version 16)
Quarter: 2020Q2

REPORT INFORMATION
  Report Type: Spontaneous
  Country: US (occurrence: US)
  Receive Date: 20151231
  Receipt Date: 20200410
  Transmission Date: 20200713
  Serious: Yes (Other)
  Sender: FDA-Public Use
  Company Number: US-PFIZER INC-2015471358

PATIENT
  Age: 63 Year
  Sex: Male
  Weight: 104 kg

DRUGS (2)
  1. EFFEXOR XR [Suspect]
     Active Substance: VENLAFAXINE HYDROCHLORIDE
     Dosage: 300 MG, DAILY
     Route: 048
  2. EFFEXOR XR [Suspect]
     Active Substance: VENLAFAXINE HYDROCHLORIDE
     Indication: DEPRESSION
     Dosage: 150 MG, ONCE DAILY
     Route: 048
     Dates: start: 2005

REACTIONS (7)
  - Blood pressure increased [Unknown]
  - Obesity [Unknown]
  - Blood cholesterol increased [Unknown]
  - Myocardial infarction [Unknown]
  - Drug ineffective [Unknown]
  - Lipids increased [Unknown]
  - Prescribed overdose [Unknown]

NARRATIVE: CASE EVENT DATE: 2007
